FAERS Safety Report 10586120 (Version 1)
Quarter: 2014Q4

REPORT INFORMATION
  Report Type: Spontaneous
  Country: US (occurrence: US)
  Receive Date: 20141115
  Receipt Date: 20141115
  Transmission Date: 20150529
  Serious: No
  Sender: FDA-Public Use
  Company Number: US-009507513-1410USA015439

PATIENT
  Sex: Female
  Weight: 57.14 kg

DRUGS (2)
  1. NUVARING [Suspect]
     Active Substance: ETHINYL ESTRADIOL\ETONOGESTREL
     Indication: CONTRACEPTION
     Dosage: DOSE/ FREQUENCY: 3 WEEKS IN/ 1 WEEK OUT
     Route: 067
     Dates: start: 2014
  2. NUVARING [Suspect]
     Active Substance: ETHINYL ESTRADIOL\ETONOGESTREL
     Dosage: DOSE/ FREQUENCY: 3 WEEKS IN/ 1 WEEK OUT
     Route: 067
     Dates: start: 200710, end: 2014

REACTIONS (3)
  - No adverse event [Unknown]
  - Oligomenorrhoea [Recovered/Resolved]
  - Product quality issue [Unknown]

NARRATIVE: CASE EVENT DATE: 2014
